FAERS Safety Report 20984590 (Version 1)
Quarter: 2022Q2

REPORT INFORMATION
  Report Type: Spontaneous
  Country: US (occurrence: None)
  Receive Date: 20220621
  Receipt Date: 20220621
  Transmission Date: 20220720
  Serious: No
  Sender: FDA-Public Use
  Company Number: US-ROCHE-2884922

PATIENT
  Sex: Female

DRUGS (2)
  1. XELODA [Suspect]
     Active Substance: CAPECITABINE
     Indication: Product used for unknown indication
     Route: 048
  2. TUKYSA [Suspect]
     Active Substance: TUCATINIB
     Indication: Breast cancer female
     Route: 065

REACTIONS (24)
  - Stomatitis [Unknown]
  - Tongue ulceration [Unknown]
  - Fatigue [Unknown]
  - Skin exfoliation [Unknown]
  - Nausea [Unknown]
  - Frequent bowel movements [Unknown]
  - Asthenia [Unknown]
  - Weight decreased [Unknown]
  - Memory impairment [Unknown]
  - Feeling abnormal [Unknown]
  - Red blood cell count decreased [Unknown]
  - White blood cell count decreased [Unknown]
  - Hand-foot-and-mouth disease [Unknown]
  - Vomiting [Unknown]
  - Diarrhoea [Recovered/Resolved]
  - Depression [Recovered/Resolved]
  - Somnolence [Recovered/Resolved]
  - Crying [Recovered/Resolved]
  - Blood alkaline phosphatase increased [Unknown]
  - Alopecia [Unknown]
  - Fatigue [Unknown]
  - Hepatic function abnormal [Recovering/Resolving]
  - Onychomadesis [Unknown]
  - Pain [Unknown]
